FAERS Safety Report 5017121-5 (Version None)
Quarter: 2006Q2

REPORT INFORMATION
  Report Type: 
  Country: None (occurrence: None)
  Receive Date: 20060602
  Receipt Date: 20060523
  Transmission Date: 20061013
  Serious: Yes (Life-Threatening, Hospitalization, Other)
  Sender: FDA-Public Use
  Company Number: IE-AVENTIS-200615601GDDC

PATIENT
  Age: 70 Year
  Sex: Female

DRUGS (12)
  1. LANTUS [Suspect]
     Indication: DIABETES MELLITUS
     Dosage: DOSE: 30/36
     Route: 058
     Dates: start: 20060222
  2. ZOPICLONE [Concomitant]
     Indication: ANXIETY
     Route: 048
     Dates: start: 20060222, end: 20060222
  3. PLAVIX [Concomitant]
     Indication: PROPHYLAXIS
     Route: 048
     Dates: start: 20060225
  4. PRAVASTATIN [Concomitant]
     Indication: BLOOD CHOLESTEROL
     Route: 048
     Dates: start: 20060225
  5. HEPARIN [Concomitant]
     Indication: THROMBOSIS PROPHYLAXIS
     Route: 041
     Dates: start: 20060222, end: 20060414
  6. CALCICHEW-D3 [Concomitant]
     Indication: OSTEOARTHRITIS
     Route: 048
     Dates: start: 20060210
  7. ASPIRIN [Concomitant]
     Indication: PROPHYLAXIS
     Route: 048
     Dates: start: 20060210
  8. QUININE SULFATE [Concomitant]
     Indication: MUSCLE SPASMS
     Route: 048
     Dates: start: 20060210
  9. QUININE SULFATE [Concomitant]
     Indication: PERIPHERAL VASCULAR DISORDER
     Route: 048
     Dates: start: 20060210
  10. CYSTRIN [Concomitant]
     Indication: POLLAKIURIA
     Route: 048
     Dates: start: 20060216, end: 20060222
  11. BURINEX [Concomitant]
     Indication: CARDIAC FAILURE
     Route: 048
     Dates: start: 20060322
  12. LISINOPRIL [Concomitant]
     Indication: BLOOD PRESSURE
     Route: 048
     Dates: start: 20060210, end: 20060409

REACTIONS (12)
  - CARDIAC FAILURE CONGESTIVE [None]
  - DYSPNOEA [None]
  - HYPERKALAEMIA [None]
  - HYPOGLYCAEMIA [None]
  - HYPOTHERMIA [None]
  - PERIPHERAL VASCULAR DISORDER [None]
  - RENAL FAILURE ACUTE [None]
  - RESPIRATORY TRACT INFECTION [None]
  - SEPSIS [None]
  - SOMNOLENCE [None]
  - WOUND DEHISCENCE [None]
  - WOUND INFECTION [None]
